FAERS Safety Report 21396560 (Version 1)
Quarter: 2022Q3

REPORT INFORMATION
  Report Type: Spontaneous
  Country: US (occurrence: US)
  Receive Date: 20220930
  Receipt Date: 20220930
  Transmission Date: 20221027
  Serious: No
  Sender: FDA-Public Use
  Company Number: US-PFIZER INC-202201193849

PATIENT
  Age: 65 Year
  Sex: Female

DRUGS (1)
  1. IBRANCE [Suspect]
     Active Substance: PALBOCICLIB
     Dosage: 100 MG, CYCLIC (EVERY MORNING WITH BREAKFAST FOR 21 DAYS ON FOLLOWED BY 7 DAYS REST)
     Route: 048
     Dates: start: 20220826

REACTIONS (4)
  - Groin pain [Recovering/Resolving]
  - Visual impairment [Unknown]
  - Arthropathy [Unknown]
  - Mass [Unknown]

NARRATIVE: CASE EVENT DATE: 20220101
